FAERS Safety Report 8554075-9 (Version None)
Quarter: 2012Q3

REPORT INFORMATION
  Report Type: 
  Country: None (occurrence: None)
  Receive Date: 20120731
  Receipt Date: 20120723
  Transmission Date: 20120928
  Serious: Yes (Other)
  Sender: FDA-Public Use
  Company Number: JP-VERTEX PHARMACEUTICALS INC.-AE-2012-009723

PATIENT
  Sex: Male

DRUGS (13)
  1. PEG-INTRON [Concomitant]
     Route: 058
     Dates: start: 20120405
  2. PEG-INTRON [Concomitant]
     Route: 058
     Dates: start: 20120412, end: 20120627
  3. TELAVIC (TELAPREVIR) [Suspect]
     Route: 048
     Dates: start: 20120210
  4. REBETOL [Concomitant]
     Route: 048
     Dates: start: 20120210, end: 20120425
  5. PEG-INTRON [Concomitant]
     Route: 058
     Dates: start: 20120405, end: 20120411
  6. TELAVIC (TELAPREVIR) [Suspect]
     Indication: HEPATITIS C
     Route: 048
     Dates: start: 20120112, end: 20120209
  7. REBETOL [Concomitant]
     Route: 048
     Dates: start: 20120426, end: 20120627
  8. PEG-INTRON [Concomitant]
     Route: 058
     Dates: start: 20120308, end: 20120314
  9. REBETOL [Concomitant]
     Indication: HEPATITIS C
     Route: 048
     Dates: start: 20120112, end: 20120208
  10. PEG-INTRON [Concomitant]
     Indication: HEPATITIS C
     Route: 058
     Dates: start: 20120112, end: 20120307
  11. PEG-INTRON [Concomitant]
     Route: 058
     Dates: start: 20120315, end: 20120404
  12. ALLOPURINOL [Concomitant]
     Route: 048
     Dates: start: 20120315
  13. REBETOL [Concomitant]
     Route: 048
     Dates: start: 20120209, end: 20120209

REACTIONS (1)
  - NEUTROPHIL COUNT DECREASED [None]
